FAERS Safety Report 15594260 (Version 1)
Quarter: 2018Q4

REPORT INFORMATION
  Report Type: Spontaneous
  Country: JP (occurrence: JP)
  Receive Date: 20181106
  Receipt Date: 20181106
  Transmission Date: 20190205
  Serious: Yes (Other)
  Sender: FDA-Public Use
  Company Number: JP-MYLANLABS-2018M1083870

PATIENT
  Age: 62 Year
  Sex: Female

DRUGS (5)
  1. CLARITHROMYCIN. [Suspect]
     Active Substance: CLARITHROMYCIN
     Indication: RHEUMATOID ARTHRITIS
     Route: 065
  2. LOXONIN [Suspect]
     Active Substance: LOXOPROFEN SODIUM
     Indication: RHEUMATOID ARTHRITIS
     Route: 065
  3. PREDNISOLONE. [Suspect]
     Active Substance: PREDNISOLONE
     Indication: RHEUMATOID ARTHRITIS
     Route: 065
  4. METHOTREXATE. [Suspect]
     Active Substance: METHOTREXATE
     Indication: RHEUMATOID ARTHRITIS
     Route: 065
  5. SALAZOSULFAPYRIDINE [Suspect]
     Active Substance: SULFASALAZINE
     Indication: RHEUMATOID ARTHRITIS
     Route: 065

REACTIONS (2)
  - Drug ineffective [Unknown]
  - Cytopenia [Unknown]
